FAERS Safety Report 9702229 (Version 1)
Quarter: 2013Q4

REPORT INFORMATION
  Report Type: Spontaneous
  Country: US (occurrence: US)
  Receive Date: 20131121
  Receipt Date: 20131121
  Transmission Date: 20140711
  Serious: Yes (Other)
  Sender: FDA-Public Use
  Company Number: US-BAYER-2013-140914

PATIENT
  Age: 23 Year
  Sex: Female

DRUGS (1)
  1. MIRENA [Suspect]
     Indication: CONTRACEPTION
     Dosage: 20 MCG/24HR, CONT
     Route: 015
     Dates: start: 20090524, end: 20130918

REACTIONS (5)
  - Vaginal haemorrhage [None]
  - Genital haemorrhage [None]
  - Abdominal pain [None]
  - Amenorrhoea [None]
  - Vaginal haemorrhage [None]
